FAERS Safety Report 7597590-7 (Version None)
Quarter: 2011Q3

REPORT INFORMATION
  Report Type: 
  Country: None (occurrence: None)
  Receive Date: 20110708
  Receipt Date: 20110629
  Transmission Date: 20111222
  Serious: Yes (Hospitalization, Other)
  Sender: FDA-Public Use
  Company Number: US-ROCHE-552214

PATIENT
  Sex: Female
  Weight: 72.6 kg

DRUGS (1)
  1. ACCUTANE [Suspect]
     Route: 065
     Dates: start: 19890303, end: 19890624

REACTIONS (21)
  - INTESTINAL OBSTRUCTION [None]
  - INFLAMMATORY BOWEL DISEASE [None]
  - DIARRHOEA HAEMORRHAGIC [None]
  - DUODENAL ULCER [None]
  - COLONIC POLYP [None]
  - PAPILLITIS [None]
  - ERYTHEMA NODOSUM [None]
  - ANAL FISTULA [None]
  - CROHN'S DISEASE [None]
  - DEPRESSION [None]
  - ANAL FISSURE [None]
  - ENTEROCUTANEOUS FISTULA [None]
  - URINARY TRACT INFECTION [None]
  - SMALL INTESTINAL OBSTRUCTION [None]
  - COLITIS [None]
  - COELIAC DISEASE [None]
  - HAEMORRHOIDS [None]
  - POSTOPERATIVE ABSCESS [None]
  - GASTROINTESTINAL STOMA COMPLICATION [None]
  - ABDOMINAL ABSCESS [None]
  - ANAEMIA [None]
